FAERS Safety Report 4289068-3 (Version None)
Quarter: 2004Q1

REPORT INFORMATION
  Report Type: 
  Country: None (occurrence: None)
  Receive Date: 20040209
  Receipt Date: 20031105
  Transmission Date: 20041129
  Serious: Yes (Hospitalization)
  Sender: FDA-Public Use
  Company Number: WAES 0311FRA00008

PATIENT
  Age: 90 Year
  Sex: Male

DRUGS (5)
  1. DIGOXIN [Concomitant]
     Indication: CARDIAC FAILURE CONGESTIVE
     Route: 048
     Dates: end: 20030801
  2. FUROSEMIDE [Concomitant]
     Indication: CARDIAC FAILURE CONGESTIVE
     Route: 048
     Dates: end: 20030801
  3. GLIMEPIRIDE [Concomitant]
     Indication: DIABETES MELLITUS
     Route: 048
     Dates: end: 20030501
  4. COZAAR [Concomitant]
     Indication: HYPERTENSION
     Route: 048
     Dates: end: 20030801
  5. VIOXX [Suspect]
     Indication: LOCALISED OSTEOARTHRITIS
     Route: 048
     Dates: start: 20030401, end: 20030501

REACTIONS (5)
  - CEREBROVASCULAR ACCIDENT [None]
  - DRUG ERUPTION [None]
  - DYSPHAGIA [None]
  - MULTI-ORGAN FAILURE [None]
  - PNEUMONIA ASPIRATION [None]
